FAERS Safety Report 6377932-0 (Version None)
Quarter: 2009Q3

REPORT INFORMATION
  Report Type: 
  Country: None (occurrence: None)
  Receive Date: 20090925
  Receipt Date: 20090917
  Transmission Date: 20100115
  Serious: Yes (Hospitalization, Other)
  Sender: FDA-Public Use
  Company Number: PHHY2009JP33020

PATIENT
  Age: 62 Year
  Sex: Female

DRUGS (5)
  1. GLEEVEC [Suspect]
     Indication: ACUTE LYMPHOCYTIC LEUKAEMIA
     Dosage: UNK
     Route: 048
  2. GLEEVEC [Suspect]
     Dosage: 200MG, DAILY
     Route: 048
     Dates: start: 20090101
  3. GLEEVEC [Suspect]
     Dosage: 400MG, DAILY
     Route: 048
     Dates: end: 20090601
  4. PREDNISOLONE [Concomitant]
     Indication: ACUTE LYMPHOCYTIC LEUKAEMIA
     Route: 048
  5. VINCRISTINE [Concomitant]
     Indication: ACUTE LYMPHOCYTIC LEUKAEMIA

REACTIONS (7)
  - DRUG RESISTANCE [None]
  - ILEUS [None]
  - NAUSEA [None]
  - OEDEMA [None]
  - PLEURAL EFFUSION [None]
  - SEPSIS [None]
  - VOMITING [None]
